FAERS Safety Report 21874178 (Version 1)
Quarter: 2023Q1

REPORT INFORMATION
  Report Type: Spontaneous
  Country: US (occurrence: None)
  Receive Date: 20230116
  Receipt Date: 20230116
  Transmission Date: 20230417
  Serious: No
  Sender: FDA-Public Use
  Company Number: None

PATIENT
  Age: 43 Year
  Sex: Female

DRUGS (1)
  1. BENLYSTA [Suspect]
     Active Substance: BELIMUMAB
     Route: 058
     Dates: start: 202105

REACTIONS (4)
  - Nephrolithiasis [None]
  - Cholelithiasis [None]
  - Solar lentigo [None]
  - Uterine leiomyoma [None]

NARRATIVE: CASE EVENT DATE: 20230116
